FAERS Safety Report 6834396-8 (Version None)
Quarter: 2010Q3

REPORT INFORMATION
  Report Type: 
  Country: None (occurrence: None)
  Receive Date: 20100712
  Receipt Date: 20070419
  Transmission Date: 20110219
  Serious: No
  Sender: FDA-Public Use
  Company Number: US-PFIZER INC-2007032861

PATIENT
  Sex: Female
  Weight: 61.8 kg

DRUGS (3)
  1. CHANTIX [Suspect]
     Indication: SMOKING CESSATION THERAPY
     Dates: start: 20070409
  2. EFFEXOR [Suspect]
     Indication: ANXIETY
     Dates: start: 20070101
  3. ALPRAZOLAM [Suspect]
     Dates: start: 20070101

REACTIONS (4)
  - FATIGUE [None]
  - FEELING ABNORMAL [None]
  - INSOMNIA [None]
  - RETCHING [None]
